FAERS Safety Report 5492070-7 (Version None)
Quarter: 2007Q4

REPORT INFORMATION
  Report Type: 
  Country: None (occurrence: None)
  Receive Date: 20071022
  Receipt Date: 20071012
  Transmission Date: 20080405
  Serious: Yes (Other)
  Sender: FDA-Public Use
  Company Number: HQWYE203816JUL04

PATIENT
  Sex: Female
  Weight: 61.29 kg

DRUGS (3)
  1. PREMARIN [Suspect]
     Indication: HOT FLUSH
     Dosage: ^0.5MG^
     Route: 048
     Dates: start: 19970101, end: 19970101
  2. PREMARIN [Suspect]
     Indication: VULVOVAGINAL DRYNESS
  3. PREMARIN [Suspect]
     Indication: INSOMNIA

REACTIONS (1)
  - OVARIAN CANCER METASTATIC [None]
